FAERS Safety Report 7700087-4 (Version None)
Quarter: 2011Q3

REPORT INFORMATION
  Report Type: 
  Country: None (occurrence: None)
  Receive Date: 20110822
  Receipt Date: 20110815
  Transmission Date: 20111222
  Serious: Yes (Hospitalization)
  Sender: FDA-Public Use
  Company Number: AT-ABBOTT-11P-009-0846620-00

PATIENT
  Sex: Male

DRUGS (1)
  1. HUMIRA [Suspect]
     Indication: BEHCET'S SYNDROME
     Dates: start: 20110812

REACTIONS (4)
  - FATIGUE [None]
  - NEUTROPENIA [None]
  - HEADACHE [None]
  - PYREXIA [None]
